FAERS Safety Report 4376101-3 (Version None)
Quarter: 2004Q2

REPORT INFORMATION
  Report Type: 
  Country: None (occurrence: None)
  Receive Date: 20040611
  Receipt Date: 20040406
  Transmission Date: 20050107
  Serious: Yes (Hospitalization)
  Sender: FDA-Public Use
  Company Number: 200401488

PATIENT
  Age: 76 Year
  Sex: Male

DRUGS (4)
  1. TAGAMET [Suspect]
     Dosage: 800MG TWICE PER DAY
     Route: 048
     Dates: start: 20030829, end: 20040331
  2. SENNOSIDE A + SENNOSIDE B [Concomitant]
  3. SULPERAZON [Concomitant]
     Route: 042
  4. FENTANYL [Concomitant]

REACTIONS (3)
  - DEPRESSED LEVEL OF CONSCIOUSNESS [None]
  - HEPATIC FUNCTION ABNORMAL [None]
  - RENAL IMPAIRMENT [None]
